FAERS Safety Report 14802963 (Version 2)
Quarter: 2018Q3

REPORT INFORMATION
  Report Type: Report from Study
  Country: BR (occurrence: BR)
  Receive Date: 20180424
  Receipt Date: 20180725
  Transmission Date: 20181010
  Serious: Yes (Other)
  Sender: FDA-Public Use
  Company Number: BR-EMD SERONO-E2B_90038484

PATIENT
  Age: 46 Year
  Sex: Female

DRUGS (2)
  1. REBIF [Suspect]
     Active Substance: INTERFERON BETA-1A
     Indication: MULTIPLE SCLEROSIS
     Dosage: DOSE TITRATION (UNSPECIFIED)
     Route: 058
  2. REBIF [Suspect]
     Active Substance: INTERFERON BETA-1A
     Route: 058
     Dates: start: 20140714

REACTIONS (10)
  - Insomnia [Unknown]
  - Diplegia [Unknown]
  - Feeling hot [Unknown]
  - Erythema [Unknown]
  - Balance disorder [Unknown]
  - Stress [Unknown]
  - Hypertensive crisis [Recovering/Resolving]
  - Blood glucose abnormal [Unknown]
  - Anaemia [Unknown]
  - Agitation [Unknown]

NARRATIVE: CASE EVENT DATE: 201804
